FAERS Safety Report 24961801 (Version 1)
Quarter: 2025Q1

REPORT INFORMATION
  Report Type: Spontaneous
  Country: US (occurrence: None)
  Receive Date: 20250212
  Receipt Date: 20250212
  Transmission Date: 20250408
  Serious: Yes (Hospitalization, Other)
  Sender: FDA-CTU
  Company Number: None

PATIENT
  Age: 64 Year
  Sex: Male
  Weight: 82.55 kg

DRUGS (11)
  1. REPATHA [Suspect]
     Active Substance: EVOLOCUMAB
     Indication: Hypercholesterolaemia
     Dosage: FREQUENCY : EVERY OTHER WEEK;?
     Route: 058
     Dates: start: 20230509, end: 20250128
  2. ASPIRIN [Concomitant]
     Active Substance: ASPIRIN
  3. CYCLOBENZAPRINE [Concomitant]
     Active Substance: CYCLOBENZAPRINE
  4. ESZOPICLONE [Concomitant]
     Active Substance: ESZOPICLONE
  5. METOPROLOL SUCCINATE [Concomitant]
     Active Substance: METOPROLOL SUCCINATE
  6. AZELASTINE [Concomitant]
     Active Substance: AZELASTINE
  7. FAMOTIDINE [Concomitant]
     Active Substance: FAMOTIDINE
  8. GLIPIZIDE [Concomitant]
     Active Substance: GLIPIZIDE
  9. PRAZOSIN [Concomitant]
     Active Substance: PRAZOSIN
  10. One a day Mens formula [Concomitant]
  11. OXYCODONE [Concomitant]
     Active Substance: OXYCODONE

REACTIONS (2)
  - Cardiac operation [None]
  - Intentional dose omission [None]

NARRATIVE: CASE EVENT DATE: 20250128
